FAERS Safety Report 17808936 (Version 1)
Quarter: 2020Q2

REPORT INFORMATION
  Report Type: Spontaneous
  Country: GB (occurrence: GB)
  Receive Date: 20200520
  Receipt Date: 20200520
  Transmission Date: 20200714
  Serious: Yes (Life-Threatening)
  Sender: FDA-Public Use
  Company Number: GB-TEVA-2020-GB-1219849

PATIENT
  Age: 75 Year
  Sex: Female
  Weight: 72 kg

DRUGS (9)
  1. CODEINE [Suspect]
     Active Substance: CODEINE
     Dosage: 15MG. TAKE ONE OR TWO 4 TIMES/DAY
     Dates: start: 20200226
  2. PARACETAMOL [Concomitant]
     Active Substance: ACETAMINOPHEN
     Dosage: UP TO 4 TIMES/DAY,2 DF
     Dates: start: 20191020
  3. RANITIDINE. [Concomitant]
     Active Substance: RANITIDINE
     Dosage: 2 DF
     Dates: start: 20191020
  4. ALENDRONIC ACID [Concomitant]
     Active Substance: ALENDRONIC ACID
     Dosage: SWALLOW WITH PLENTY OF WATER W,1 DF
     Dates: start: 20190603, end: 20200319
  5. BISOPROLOL [Concomitant]
     Active Substance: BISOPROLOL
     Dosage: 1 DF
     Dates: start: 20191020
  6. EPIPEN [Concomitant]
     Active Substance: EPINEPHRINE
     Dosage: USE AS DIRECTED
     Dates: start: 20200304, end: 20200305
  7. NITROFURANTOIN. [Suspect]
     Active Substance: NITROFURANTOIN
     Dates: start: 20200226, end: 20200304
  8. EMERADE [Concomitant]
     Active Substance: EPINEPHRINE BITARTRATE
     Dosage: USE AS DIRECTED
     Dates: start: 20200304, end: 20200305
  9. RIVAROXABAN [Concomitant]
     Active Substance: RIVAROXABAN
     Dosage: 1 DF
     Dates: start: 20191125

REACTIONS (2)
  - Swollen tongue [Unknown]
  - Swelling face [Recovered/Resolved]
